FAERS Safety Report 24289344 (Version 2)
Quarter: 2024Q4

REPORT INFORMATION
  Report Type: Report from Study
  Country: JP (occurrence: JP)
  Receive Date: 20240906
  Receipt Date: 20241008
  Transmission Date: 20250115
  Serious: Yes (Other)
  Sender: JOHNSON AND JOHNSON
  Company Number: JP-MTPC-MTPC2024-0018578

PATIENT
  Age: 66 Year
  Sex: Male

DRUGS (6)
  1. CANAGLIFLOZIN [Suspect]
     Active Substance: CANAGLIFLOZIN
     Indication: Type 2 diabetes mellitus
     Dosage: 100 MILLIGRAM, QD
     Route: 048
     Dates: start: 20231213, end: 20240327
  2. CANAGLIFLOZIN [Suspect]
     Active Substance: CANAGLIFLOZIN
     Route: 048
  3. NESINA [Concomitant]
     Active Substance: ALOGLIPTIN BENZOATE
     Dosage: 25 MILLIGRAM, QD
     Route: 048
  4. METGLUCO [Concomitant]
     Active Substance: METFORMIN HYDROCHLORIDE
     Dosage: 500 MILLIGRAM, QD
     Route: 048
  5. AMLODIPINE [Concomitant]
     Active Substance: AMLODIPINE BESYLATE
     Dosage: 2.5 MILLIGRAM, QD
     Route: 048
  6. AVAPRO [Concomitant]
     Active Substance: IRBESARTAN
     Dosage: 200 MILLIGRAM, QD
     Route: 048

REACTIONS (1)
  - Drug-induced liver injury [Recovering/Resolving]

NARRATIVE: CASE EVENT DATE: 20240117
